FAERS Safety Report 8394314-0 (Version None)
Quarter: 2012Q1

REPORT INFORMATION
  Report Type: 
  Country: None (occurrence: None)
  Receive Date: 20120323
  Receipt Date: 20110504
  Transmission Date: 20120608
  Serious: Yes (Other)
  Sender: FDA-Public Use
  Company Number: 163-21880-11050765

PATIENT
  Age: 66 Year
  Sex: Male
  Weight: 88.4514 kg

DRUGS (8)
  1. NEURONTIN [Concomitant]
  2. MORPHINE SULFATE [Concomitant]
  3. LACTULOSE [Concomitant]
  4. VICODIN [Concomitant]
  5. VITAMIN B(VITAMIN B)(UNKNOWN) [Concomitant]
  6. REVLIMID [Suspect]
     Indication: MULTIPLE MYELOMA
     Dosage: 25 MG, DAILY X 21 DAYS, PO, 10 MG, DAILY X 21 DAYS, PO
     Route: 048
     Dates: start: 20110216
  7. REVLIMID [Suspect]
     Indication: MULTIPLE MYELOMA
     Dosage: 25 MG, DAILY X 21 DAYS, PO, 10 MG, DAILY X 21 DAYS, PO
     Route: 048
     Dates: start: 20110501
  8. ALPHA LIPOIC ACID(THIOCTIC ACID)(TABLETS) [Concomitant]

REACTIONS (1)
  - RASH GENERALISED [None]
